FAERS Safety Report 11294618 (Version 1)
Quarter: 2015Q3

REPORT INFORMATION
  Report Type: Spontaneous
  Country: GB (occurrence: None)
  Receive Date: 20150721
  Receipt Date: 20150721
  Transmission Date: 20151125
  Serious: Yes (Hospitalization)
  Sender: FDA-Public Use
  Company Number: FK201503434

PATIENT
  Age: 81 Year
  Sex: Female

DRUGS (2)
  1. ZOLEDRONIC ACID (MANUFACTURER UNKNOWN) (ZOLEDRONIC ACID) (ZOLEDRONIC ACID) [Suspect]
     Active Substance: ZOLEDRONIC ACID
     Indication: OSTEOARTHRITIS
     Dosage: (NOT OTHERWISE SPECIFIED)
     Route: 042
  2. ZOLEDRONIC ACID (MANUFACTURER UNKNOWN) (ZOLEDRONIC ACID) (ZOLEDRONIC ACID) [Suspect]
     Active Substance: ZOLEDRONIC ACID
     Indication: OSTEOPOROSIS
     Dosage: (NOT OTHERWISE SPECIFIED)
     Route: 042

REACTIONS (7)
  - Polyarthritis [None]
  - Fall [None]
  - Impaired self-care [None]
  - Pyrexia [None]
  - International normalised ratio increased [None]
  - Asthenia [None]
  - Mobility decreased [None]
